FAERS Safety Report 7186482-3 (Version None)
Quarter: 2010Q4

REPORT INFORMATION
  Report Type: 
  Country: None (occurrence: None)
  Receive Date: 20101222
  Receipt Date: 20101215
  Transmission Date: 20110411
  Serious: No
  Sender: FDA-Public Use
  Company Number: US-PFIZER INC-2010175723

PATIENT
  Age: 65 Year
  Sex: Female
  Weight: 56.69 kg

DRUGS (1)
  1. ADVIL [Suspect]
     Indication: FIBROMYALGIA
     Dosage: 1-2 TABLETS PER DAY
     Route: 048
     Dates: start: 20100801

REACTIONS (2)
  - DRY EYE [None]
  - VISION BLURRED [None]
